FAERS Safety Report 13250849 (Version 4)
Quarter: 2017Q2

REPORT INFORMATION
  Report Type: Report from Study
  Country: None (occurrence: TN)
  Receive Date: 20170220
  Receipt Date: 20170512
  Transmission Date: 20170830
  Serious: Yes (Hospitalization)
  Sender: FDA-Public Use
  Company Number: TN-ABBVIE-17P-160-1877108-00

PATIENT
  Sex: Female
  Weight: 51 kg

DRUGS (3)
  1. HUMIRA [Suspect]
     Active Substance: ADALIMUMAB
     Indication: CROHN^S DISEASE
     Route: 058
     Dates: start: 2014, end: 201612
  2. IMUREL [Concomitant]
     Active Substance: AZATHIOPRINE SODIUM
     Indication: CROHN^S DISEASE
  3. HUMIRA [Suspect]
     Active Substance: ADALIMUMAB
     Route: 058
     Dates: start: 20170211

REACTIONS (9)
  - Iron deficiency [Recovered/Resolved]
  - Arthralgia [Recovered/Resolved]
  - Influenza [Recovered/Resolved]
  - Injection site pruritus [Not Recovered/Not Resolved]
  - Dizziness [Recovered/Resolved]
  - Injection site swelling [Not Recovered/Not Resolved]
  - Abdominal pain [Recovered/Resolved]
  - Dyspnoea [Recovered/Resolved]
  - Injection site erythema [Not Recovered/Not Resolved]

NARRATIVE: CASE EVENT DATE: 2014
